FAERS Safety Report 21038422 (Version 2)
Quarter: 2022Q3

REPORT INFORMATION
  Report Type: Spontaneous
  Country: US (occurrence: US)
  Receive Date: 20220704
  Receipt Date: 20220722
  Transmission Date: 20221027
  Serious: No
  Sender: FDA-Public Use
  Company Number: US-JNJFOC-20220638083

PATIENT
  Sex: Male
  Weight: 111.68 kg

DRUGS (1)
  1. TREMFYA [Suspect]
     Active Substance: GUSELKUMAB
     Indication: Psoriasis
     Route: 058
     Dates: start: 202109

REACTIONS (4)
  - Procedural complication [Unknown]
  - Product dose omission issue [Unknown]
  - Device use issue [Unknown]
  - Liquid product physical issue [Unknown]
